FAERS Safety Report 6856432-5 (Version None)
Quarter: 2010Q3

REPORT INFORMATION
  Report Type: 
  Country: None (occurrence: None)
  Receive Date: 20100719
  Receipt Date: 20100710
  Transmission Date: 20110219
  Serious: Yes (Death, Hospitalization)
  Sender: FDA-Public Use
  Company Number: TH-ROCHE-700518

PATIENT
  Age: 28 Year
  Sex: Male

DRUGS (1)
  1. OSELTAMIVIR [Suspect]
     Indication: AVIAN INFLUENZA
     Route: 065
     Dates: start: 20060731, end: 20060803

REACTIONS (1)
  - PNEUMONIA [None]
